FAERS Safety Report 20762638 (Version 1)
Quarter: 2022Q2

REPORT INFORMATION
  Report Type: Spontaneous
  Country: US (occurrence: None)
  Receive Date: 20220427
  Receipt Date: 20220427
  Transmission Date: 20220721
  Serious: Yes (Disabling)
  Sender: FDA-Public Use
  Company Number: None

PATIENT
  Age: 31 Year
  Sex: Male
  Weight: 85.5 kg

DRUGS (1)
  1. FINASTERIDE [Suspect]
     Active Substance: FINASTERIDE
     Indication: Androgenetic alopecia
     Route: 048
     Dates: start: 20210801, end: 20220418

REACTIONS (4)
  - Anxiety disorder [None]
  - Depression [None]
  - Sexual dysfunction [None]
  - Adverse drug reaction [None]

NARRATIVE: CASE EVENT DATE: 20220111
